FAERS Safety Report 9798281 (Version 1)
Quarter: 2014Q1

REPORT INFORMATION
  Report Type: Spontaneous
  Country: US (occurrence: None)
  Receive Date: 20140103
  Receipt Date: 20140103
  Transmission Date: 20141002
  Serious: Yes (Life-Threatening, Hospitalization, Disabling)
  Sender: FDA-Public Use
  Company Number: None

PATIENT
  Age: 64 Year
  Sex: Male
  Weight: 81.65 kg

DRUGS (6)
  1. FERAHEME [Suspect]
     Indication: BLOOD IRON DECREASED
     Dates: start: 20131210, end: 20131223
  2. FERAHEME [Suspect]
     Indication: ANAEMIA
     Dates: start: 20131210, end: 20131223
  3. FLUTICASONE NASAL SPRAY [Concomitant]
  4. NAPROXEN [Concomitant]
  5. NATUREMADE STRESS B VITAMIN [Concomitant]
  6. ZYRTEC [Concomitant]

REACTIONS (3)
  - Acute respiratory failure [None]
  - Loss of consciousness [None]
  - Hypoxia [None]
